FAERS Safety Report 8788634 (Version 2)
Quarter: 2012Q4

REPORT INFORMATION
  Report Type: 
  Country: CA (occurrence: CA)
  Receive Date: 20120916
  Receipt Date: 20120918
  Transmission Date: 20130627
  Serious: Yes (Death)
  Sender: FDA-Public Use
  Company Number: PHHY2012CA079748

PATIENT
  Age: 67 Year
  Sex: Male

DRUGS (9)
  1. CLOZARIL [Suspect]
     Indication: PSYCHOTIC DISORDER
     Dosage: 31.25 mg, ( 6.25 mg TID + 12.5 mg QD)
     Route: 048
     Dates: start: 20120607
  2. IBUPROFEN [Concomitant]
     Dosage: PRN
  3. GLYCOPYRROLATE [Concomitant]
  4. MIDAZOLAM [Concomitant]
  5. MORPHINE SULFATE [Concomitant]
  6. SCOPOLAMINE [Concomitant]
  7. LORAZEPAM [Concomitant]
  8. DOMPERIDONE [Concomitant]
     Dosage: PRN
  9. LEVODOPA-CARBIDOPA [Concomitant]

REACTIONS (3)
  - Parkinson^s disease [Fatal]
  - Hypophagia [Unknown]
  - Dysphagia [Unknown]
